FAERS Safety Report 21671083 (Version 2)
Quarter: 2024Q1

REPORT INFORMATION
  Report Type: Spontaneous
  Country: US (occurrence: US)
  Receive Date: 20221202
  Receipt Date: 20240304
  Transmission Date: 20240409
  Serious: Yes (Hospitalization)
  Sender: FDA-Public Use
  Company Number: US-GBT-018284

PATIENT
  Age: 55 Year
  Sex: Female

DRUGS (3)
  1. OXBRYTA [Suspect]
     Active Substance: VOXELOTOR
     Indication: Sickle cell disease
     Dosage: (3-500 MG TABLETS) BY MOUTH ONCE DAILY
     Route: 048
     Dates: start: 20220819
  2. JADENU [Concomitant]
     Active Substance: DEFERASIROX
     Dosage: UNK
  3. PROCRIT [Concomitant]
     Active Substance: ERYTHROPOIETIN
     Dosage: 1ML/VL

REACTIONS (1)
  - Haemoglobin decreased [Recovering/Resolving]
